FAERS Safety Report 14940126 (Version 1)
Quarter: 2018Q2

REPORT INFORMATION
  Report Type: Spontaneous
  Country: US (occurrence: US)
  Receive Date: 20180507
  Receipt Date: 20180507
  Transmission Date: 20180711
  Serious: Yes (Hospitalization)
  Sender: FDA-Public Use
  Company Number: None

PATIENT
  Age: 71 Year
  Sex: Female

DRUGS (11)
  1. FENTANYL. [Concomitant]
     Active Substance: FENTANYL
  2. SENNA [Concomitant]
     Active Substance: SENNA LEAF\SENNOSIDES\SENNOSIDES A AND B
  3. LETROZOLE. [Concomitant]
     Active Substance: LETROZOLE
  4. DOCQLACE [Concomitant]
     Active Substance: DOCUSATE SODIUM
  5. LOSARTA [Concomitant]
  6. OXYCODONE [Concomitant]
     Active Substance: OXYCODONE
  7. APAP [Concomitant]
     Active Substance: ACETAMINOPHEN
  8. IBRANCE [Suspect]
     Active Substance: PALBOCICLIB
     Indication: BREAST CANCER
     Route: 048
     Dates: start: 20180201
  9. OMEPRAZOLE. [Concomitant]
     Active Substance: OMEPRAZOLE
  10. LORAZEPAM. [Concomitant]
     Active Substance: LORAZEPAM
  11. LOVENOX [Concomitant]
     Active Substance: ENOXAPARIN SODIUM

REACTIONS (2)
  - Confusional state [None]
  - Pneumonia [None]

NARRATIVE: CASE EVENT DATE: 20180405
